FAERS Safety Report 23839289 (Version 3)
Quarter: 2024Q2

REPORT INFORMATION
  Report Type: Report from Study
  Country: NL (occurrence: NL)
  Receive Date: 20240509
  Receipt Date: 20240618
  Transmission Date: 20240716
  Serious: Yes (Death, Hospitalization, Other)
  Sender: FDA-Public Use
  Company Number: NL-ABBVIE-5752247

PATIENT
  Sex: Male

DRUGS (10)
  1. CARBIDOPA\LEVODOPA [Suspect]
     Active Substance: CARBIDOPA\LEVODOPA
     Indication: Parkinson^s disease
     Dosage: MD:0.0ML, ED:2.30ML, CND:2.8ML/H, MD:7.3ML. CD:4.1ML/H, ED:3.00ML, REMAINS AT 24 HOURS
     Route: 050
     Dates: start: 20230714, end: 20230918
  2. CARBIDOPA\LEVODOPA [Suspect]
     Active Substance: CARBIDOPA\LEVODOPA
     Dosage: MD:7.3ML. CD:4.3ML/H, ED:3.00ML, END:2.30ML, CND:3.0ML/H, REMAINS AT 24 HOURS
     Route: 050
     Dates: start: 20240109, end: 20240507
  3. CARBIDOPA\LEVODOPA [Suspect]
     Active Substance: CARBIDOPA\LEVODOPA
     Dosage: REMAINS AT 24 HOURS
     Route: 050
  4. CARBIDOPA\LEVODOPA [Suspect]
     Active Substance: CARBIDOPA\LEVODOPA
     Dosage: MD:7.3ML. CD:4.3ML/H, ED:3.00ML, END:2.30ML, CND:3.0ML/H, REMAINS AT 24 HOURS
     Route: 050
     Dates: start: 20230918, end: 20240109
  5. CARBIDOPA\LEVODOPA [Suspect]
     Active Substance: CARBIDOPA\LEVODOPA
     Dosage: REMAINS AT 24 HOURS
     Route: 050
     Dates: start: 20121205
  6. CARBIDOPA\LEVODOPA [Suspect]
     Active Substance: CARBIDOPA\LEVODOPA
     Dosage: MD:7.3ML. CD:4.3ML/H, ED:3.00ML, END:2.30ML, CND:3.0ML/H ?REMAINS AT 24 HOURS,?LAST ADMIN DATE : ...
     Route: 050
     Dates: start: 20240507
  7. CARBIDOPA\LEVODOPA [Concomitant]
     Active Substance: CARBIDOPA\LEVODOPA
     Indication: Parkinson^s disease
     Dosage: FORM STRENGTH: 250 MILLIGRAM, ?1 IN 1 DAY TABLET IN THE EVENING?RETARD
     Route: 048
     Dates: start: 20170901
  8. IRBESARTAN [Concomitant]
     Active Substance: IRBESARTAN
     Indication: Blood pressure measurement
     Dosage: FORM STRENGTH: 150 MILLIGRAM
     Route: 048
     Dates: start: 20191104
  9. SYMMETREL [Concomitant]
     Active Substance: AMANTADINE HYDROCHLORIDE
     Indication: Adverse drug reaction
     Dosage: FORM STRENGTH: 100 MILLIGRAM?1 IN 1 DAY IN THE MORNING
     Route: 048
     Dates: start: 20170901
  10. ESOMEPRAZOLE [Concomitant]
     Active Substance: ESOMEPRAZOLE
     Indication: Gastrointestinal disorder prophylaxis
     Dosage: FORM STRENGTH: 40 MILLIGRAM
     Route: 048
     Dates: start: 20170901

REACTIONS (17)
  - Suicidal ideation [Fatal]
  - Mobility decreased [Not Recovered/Not Resolved]
  - Muscle rigidity [Not Recovered/Not Resolved]
  - Knee operation [Recovered/Resolved]
  - On and off phenomenon [Not Recovered/Not Resolved]
  - Gait disturbance [Not Recovered/Not Resolved]
  - Device breakage [Recovered/Resolved]
  - Hyperkinesia [Not Recovered/Not Resolved]
  - Dyskinesia [Not Recovered/Not Resolved]
  - Memory impairment [Not Recovered/Not Resolved]
  - Hallucination, visual [Not Recovered/Not Resolved]
  - Freezing phenomenon [Not Recovered/Not Resolved]
  - Device issue [Unknown]
  - Bradykinesia [Not Recovered/Not Resolved]
  - Paraesthesia [Unknown]
  - Therapy cessation [Fatal]
  - Hospitalisation [Not Recovered/Not Resolved]

NARRATIVE: CASE EVENT DATE: 20240101
